FAERS Safety Report 5702534-6 (Version None)
Quarter: 2008Q2

REPORT INFORMATION
  Report Type: 
  Country: None (occurrence: None)
  Receive Date: 20080411
  Receipt Date: 20070703
  Transmission Date: 20081010
  Serious: No
  Sender: FDA-Public Use
  Company Number: US-ASTRAZENECA-2007UW15626

PATIENT
  Sex: Male

DRUGS (4)
  1. ATENOLOL [Suspect]
     Route: 048
  2. DILTIAZEM [Concomitant]
  3. MODURETIC 5-50 [Concomitant]
  4. HYDRALAZINE HCL [Concomitant]

REACTIONS (3)
  - DYSPNOEA [None]
  - JOINT SWELLING [None]
  - RASH [None]
